FAERS Safety Report 6500455-2 (Version None)
Quarter: 2009Q4

REPORT INFORMATION
  Report Type: 
  Country: None (occurrence: None)
  Receive Date: 20091127
  Receipt Date: 20081030
  Transmission Date: 20100525
  Serious: Yes (Other)
  Sender: FDA-Public Use
  Company Number: WAES 0702USA01299

PATIENT
  Age: 64 Year
  Sex: Female

DRUGS (8)
  1. TAB FOSAMAX UNK; 5 MG; 70 MG [Suspect]
     Indication: OSTEOPOROSIS
     Dosage: PO;5 MG/PO;10 MG/PO;70 MG/PO
     Route: 048
     Dates: start: 19991204, end: 20010213
  2. TAB FOSAMAX UNK; 5 MG; 70 MG [Suspect]
     Indication: OSTEOPOROSIS
     Dosage: PO;5 MG/PO;10 MG/PO;70 MG/PO
     Route: 048
     Dates: start: 20020503, end: 20060204
  3. TAB FOSAMAX UNK; 5 MG; 70 MG [Suspect]
     Indication: OSTEOPOROSIS
     Dosage: PO;5 MG/PO;10 MG/PO;70 MG/PO
     Route: 048
     Dates: start: 19990101
  4. TAB FOSAMAX UNK; 5 MG; 70 MG [Suspect]
     Indication: OSTEOPOROSIS
     Dosage: PO;5 MG/PO;10 MG/PO;70 MG/PO
     Route: 048
     Dates: start: 20020502
  5. FOSAMAX PLUS D [Suspect]
     Indication: OSTEOPOROSIS
     Dosage: 70 MG/PO
     Route: 048
     Dates: start: 20060531, end: 20061111
  6. BONIVA [Concomitant]
  7. LIPITOR [Concomitant]
  8. CALCIUM [Concomitant]

REACTIONS (13)
  - ANXIETY [None]
  - DERMATITIS CONTACT [None]
  - DIVERTICULUM [None]
  - DUODENITIS [None]
  - GASTRIC ULCER [None]
  - GASTROINTESTINAL EROSION [None]
  - HAEMORRHOIDS [None]
  - HIATUS HERNIA [None]
  - IRRITABLE BOWEL SYNDROME [None]
  - NODULE [None]
  - OSTEONECROSIS [None]
  - REFLUX OESOPHAGITIS [None]
  - ULCER [None]
